FAERS Safety Report 13269667 (Version 1)
Quarter: 2017Q1

REPORT INFORMATION
  Report Type: Spontaneous
  Country: ES (occurrence: ES)
  Receive Date: 20170224
  Receipt Date: 20170224
  Transmission Date: 20170428
  Serious: Yes (Other)
  Sender: FDA-Public Use
  Company Number: ES-BAYER-2017-025668

PATIENT
  Age: 82 Year
  Sex: Female

DRUGS (3)
  1. ACETYLSALICYLIC ACID({=100 MG) [Suspect]
     Active Substance: ASPIRIN
     Dosage: 100 MG, UNK
     Dates: start: 201601, end: 201603
  2. CLOPIDOGREL [Suspect]
     Active Substance: CLOPIDOGREL BISULFATE
     Indication: ANTICOAGULANT THERAPY
     Dosage: 75 MG, UNK
     Dates: start: 201601, end: 201603
  3. BEMIPARIN [Concomitant]
     Dosage: UNK, STARTED THIS DRUG DUE TO THROMBUS ATTACHED TO THE AURICULAR CLOSURE
     Dates: start: 201603

REACTIONS (2)
  - Atrial thrombosis [Recovered/Resolved]
  - Therapeutic product ineffective [None]
